FAERS Safety Report 5806444-5 (Version None)
Quarter: 2008Q3

REPORT INFORMATION
  Report Type: 
  Country: None (occurrence: None)
  Receive Date: 20080710
  Receipt Date: 20080703
  Transmission Date: 20090109
  Serious: Yes (Life-Threatening, Hospitalization)
  Sender: FDA-Public Use
  Company Number: FR-PFIZER INC-2008049405

PATIENT
  Sex: Male
  Weight: 69 kg

DRUGS (2)
  1. CAMPTO [Suspect]
     Indication: COLON CANCER
     Route: 042
     Dates: start: 20080415, end: 20080415
  2. FOLINIC ACID [Concomitant]

REACTIONS (1)
  - ANGIOEDEMA [None]
